FAERS Safety Report 25783216 (Version 2)
Quarter: 2025Q4

REPORT INFORMATION
  Report Type: Spontaneous
  Country: US (occurrence: US)
  Receive Date: 20250910
  Receipt Date: 20251209
  Transmission Date: 20260117
  Serious: Yes (Other)
  Sender: BRISTOL-MYERS SQUIBB COMPANY
  Company Number: US-BRISTOL-MYERS SQUIBB COMPANY-2025-124106

PATIENT
  Age: 64 Year
  Sex: Male

DRUGS (2)
  1. NIVOLUMAB [Suspect]
     Active Substance: NIVOLUMAB
     Indication: Malignant melanoma
     Dosage: CYCLE: 5
  2. NIVOLUMAB [Suspect]
     Active Substance: NIVOLUMAB
     Dosage: SAME ICI AND DOSE

REACTIONS (1)
  - Immune-mediated hepatic disorder [Recovered/Resolved]
